FAERS Safety Report 12782858 (Version 1)
Quarter: 2016Q3

REPORT INFORMATION
  Report Type: Spontaneous
  Country: US (occurrence: US)
  Receive Date: 20160926
  Receipt Date: 20160926
  Transmission Date: 20161109
  Serious: Yes (Other)
  Sender: FDA-Public Use
  Company Number: None

PATIENT
  Age: 63 Year
  Sex: Female
  Weight: 49.5 kg

DRUGS (12)
  1. PREDNISONE. [Concomitant]
     Active Substance: PREDNISONE
  2. CRANBERRY. [Concomitant]
     Active Substance: CRANBERRY
  3. CALCIUM WITH D [Concomitant]
     Active Substance: CALCIUM\VITAMIN D
  4. PULMICORT TURBUHALER [Concomitant]
     Active Substance: BUDESONIDE
  5. CINNAMON. [Concomitant]
     Active Substance: CINNAMON
  6. CARTIA XT [Suspect]
     Active Substance: DILTIAZEM HYDROCHLORIDE
     Indication: HYPERTENSION
     Route: 048
  7. ATENOLOL. [Concomitant]
     Active Substance: ATENOLOL
  8. DILTIAZEM. [Concomitant]
     Active Substance: DILTIAZEM
  9. ALBUTEROL. [Concomitant]
     Active Substance: ALBUTEROL
  10. THEOPHYLLINE [Concomitant]
     Active Substance: THEOPHYLLINE ANHYDROUS
  11. DAILY VITAMIN [Concomitant]
     Active Substance: VITAMINS
  12. LISINOPRIL. [Concomitant]
     Active Substance: LISINOPRIL

REACTIONS (5)
  - Sneezing [None]
  - Atrial fibrillation [None]
  - Heart rate increased [None]
  - Product quality issue [None]
  - Rhinorrhoea [None]

NARRATIVE: CASE EVENT DATE: 20150430
